FAERS Safety Report 8123898-2 (Version None)
Quarter: 2012Q1

REPORT INFORMATION
  Report Type: 
  Country: None (occurrence: None)
  Receive Date: 20120209
  Receipt Date: 20120131
  Transmission Date: 20120608
  Serious: No
  Sender: FDA-Public Use
  Company Number: US-BIOGENIDEC-2012BI003987

PATIENT
  Age: 42 Year
  Sex: Female

DRUGS (1)
  1. AVONEX [Suspect]
     Indication: MULTIPLE SCLEROSIS
     Route: 030
     Dates: start: 20000720

REACTIONS (6)
  - DYSARTHRIA [None]
  - DEPRESSED MOOD [None]
  - PYREXIA [None]
  - BREAST MASS [None]
  - MUSCLE SPASMS [None]
  - MEMORY IMPAIRMENT [None]
